FAERS Safety Report 7279914-3 (Version None)
Quarter: 2011Q1

REPORT INFORMATION
  Report Type: 
  Country: None (occurrence: None)
  Receive Date: 20110125
  Receipt Date: 20110110
  Transmission Date: 20110831
  Serious: Yes (Hospitalization)
  Sender: FDA-Public Use
  Company Number: 20110029

PATIENT
  Age: 43 Year
  Sex: Female

DRUGS (4)
  1. LEVETIRACETAM [Concomitant]
  2. ESCITALOPRAM [Concomitant]
  3. IBUPROFEN [Concomitant]
  4. PHENYTOIN SODIUM [Suspect]
     Indication: CONVULSION

REACTIONS (4)
  - HEPATIC FAILURE [None]
  - DRUG RASH WITH EOSINOPHILIA AND SYSTEMIC SYMPTOMS [None]
  - ANTIMITOCHONDRIAL ANTIBODY POSITIVE [None]
  - BILIARY CIRRHOSIS [None]
